FAERS Safety Report 6136084-2 (Version None)
Quarter: 2009Q1

REPORT INFORMATION
  Report Type: 
  Country: None (occurrence: None)
  Receive Date: 20090330
  Receipt Date: 20090318
  Transmission Date: 20090719
  Serious: Yes (Death, Life-Threatening, Hospitalization)
  Sender: FDA-Public Use
  Company Number: CH-JNJFOC-20090300584

PATIENT
  Age: 34 Year
  Sex: Male

DRUGS (22)
  1. REMICADE [Suspect]
     Indication: COLITIS ULCERATIVE
     Route: 042
  2. SPIRICORT [Suspect]
     Indication: COLITIS ULCERATIVE
     Route: 048
  3. BACTRIM [Suspect]
     Indication: HIV INFECTION
     Route: 048
  4. ISONIAZID [Suspect]
     Indication: DISSEMINATED TUBERCULOSIS
  5. COMBIVIR [Concomitant]
     Indication: HIV INFECTION
     Route: 048
  6. INVIRASE [Concomitant]
     Indication: HIV INFECTION
     Route: 048
  7. NORVIR [Concomitant]
     Indication: HIV INFECTION
     Route: 048
  8. NEXIUM [Concomitant]
  9. MUTAFLOR [Concomitant]
  10. FOLVITE [Concomitant]
  11. FERROSANOL [Concomitant]
  12. PERENTEROL [Concomitant]
  13. FRAXIPARINE [Concomitant]
  14. NOVORAPID [Concomitant]
  15. PYRAZINAMIDE [Concomitant]
  16. ETHAMBUTOL HCL [Concomitant]
  17. RIFABUTIN [Concomitant]
  18. CIPROFLOXACIN HCL [Concomitant]
  19. FOSCARNET [Concomitant]
  20. GENTAMYCIN SULFATE [Concomitant]
  21. RIFAMPICIN [Concomitant]
  22. IMIPENEM [Concomitant]

REACTIONS (3)
  - DISSEMINATED TUBERCULOSIS [None]
  - PANCREATITIS NECROTISING [None]
  - PULMONARY EMBOLISM [None]
